FAERS Safety Report 7071689-6 (Version None)
Quarter: 2010Q4

REPORT INFORMATION
  Report Type: 
  Country: None (occurrence: None)
  Receive Date: 20101029
  Receipt Date: 20091008
  Transmission Date: 20110411
  Serious: No
  Sender: FDA-Public Use
  Company Number: A0810933A

PATIENT
  Age: 41 Year
  Sex: Female

DRUGS (15)
  1. ADVAIR DISKUS 100/50 [Suspect]
     Indication: CHRONIC OBSTRUCTIVE PULMONARY DISEASE
     Dosage: 1PUFF TWICE PER DAY
     Route: 055
     Dates: end: 20090401
  2. WELLBUTRIN [Suspect]
     Route: 048
  3. ALBUTEROL [Concomitant]
  4. CYMBALTA [Concomitant]
  5. TOPAMAX [Concomitant]
  6. OXYBUTYNIN [Concomitant]
  7. LORAZEPAM [Concomitant]
  8. NEURONTIN [Concomitant]
  9. SEROQUEL [Concomitant]
  10. AMBIEN [Concomitant]
  11. TRAZODONE [Concomitant]
  12. SOMA [Concomitant]
  13. FIORICET [Concomitant]
  14. PERCOCET [Concomitant]
  15. BACLOFEN [Concomitant]

REACTIONS (2)
  - CANDIDIASIS [None]
  - DRUG INEFFECTIVE [None]
